FAERS Safety Report 13556891 (Version 1)
Quarter: 2017Q2

REPORT INFORMATION
  Report Type: Spontaneous
  Country: US (occurrence: US)
  Receive Date: 20170517
  Receipt Date: 20170517
  Transmission Date: 20170830
  Serious: Yes (Disabling)
  Sender: FDA-Public Use
  Company Number: None

PATIENT
  Age: 70 Year
  Sex: Female
  Weight: 71.1 kg

DRUGS (10)
  1. LEVOFLOXACIN 500 MG [Suspect]
     Active Substance: LEVOFLOXACIN
     Indication: SINUSITIS
     Dosage: ?          QUANTITY:1 TABLET(S);?
     Route: 048
     Dates: start: 20170501, end: 20170507
  2. VITAMIN C [Concomitant]
     Active Substance: ASCORBIC ACID
  3. FLOREXETINE [Concomitant]
  4. CALCIUM SUPPLEMENT [Concomitant]
     Active Substance: CALCIUM
  5. FISH OIL [Concomitant]
     Active Substance: FISH OIL
  6. ATORVASTATIN [Concomitant]
     Active Substance: ATORVASTATIN
  7. STRONTIUM [Concomitant]
     Active Substance: STRONTIUM
  8. SYNTHROID [Concomitant]
     Active Substance: LEVOTHYROXINE SODIUM
  9. CURCUMIN [Concomitant]
     Active Substance: CURCUMIN
  10. VITAMIN D3 [Concomitant]
     Active Substance: CHOLECALCIFEROL

REACTIONS (4)
  - Musculoskeletal disorder [None]
  - Pain in extremity [None]
  - Musculoskeletal stiffness [None]
  - Musculoskeletal pain [None]

NARRATIVE: CASE EVENT DATE: 20170501
